FAERS Safety Report 10246993 (Version 1)
Quarter: 2014Q2

REPORT INFORMATION
  Report Type: Spontaneous
  Country: CN (occurrence: None)
  Receive Date: 20140617
  Receipt Date: 20140617
  Transmission Date: 20141212
  Serious: Yes (Hospitalization)
  Sender: FDA-Public Use
  Company Number: 2014CVI00002

PATIENT
  Age: 53 Year
  Sex: Female
  Weight: 65.8 kg

DRUGS (1)
  1. ZINACEF (CEFUROXINE) INJECTION [Suspect]
     Dosage: 1.5 G, 1X/DAY
     Route: 042
     Dates: start: 20131113, end: 20131117

REACTIONS (6)
  - Pyelonephritis [None]
  - Haematuria [None]
  - Micturition urgency [None]
  - Renal pain [None]
  - Pollakiuria [None]
  - Nephropathy toxic [None]
